FAERS Safety Report 13281959 (Version 1)
Quarter: 2017Q1

REPORT INFORMATION
  Report Type: Spontaneous
  Country: US (occurrence: US)
  Receive Date: 20170301
  Receipt Date: 20170301
  Transmission Date: 20170428
  Serious: No
  Sender: FDA-Public Use
  Company Number: US-FERRINGPH-2016FE05699

PATIENT
  Sex: Female

DRUGS (1)
  1. DESMOPRESSIN [Suspect]
     Active Substance: DESMOPRESSIN
     Indication: DIABETES INSIPIDUS
     Dosage: 1 SPRAY IN EACH NOSTRIL 2 TIMES DAILY
     Route: 045
     Dates: start: 20160328

REACTIONS (3)
  - Drug ineffective [Unknown]
  - Thirst [Unknown]
  - Pollakiuria [Unknown]
